FAERS Safety Report 22617224 (Version 2)
Quarter: 2023Q2

REPORT INFORMATION
  Report Type: Spontaneous
  Country: US (occurrence: US)
  Receive Date: 20230620
  Receipt Date: 20230623
  Transmission Date: 20230721
  Serious: Yes (Other)
  Sender: FDA-Public Use
  Company Number: US-JNJFOC-20230637144

PATIENT

DRUGS (1)
  1. TECLISTAMAB [Suspect]
     Active Substance: TECLISTAMAB
     Indication: Product used for unknown indication
     Dosage: TREATMENT WAS NOT PART OF CAR-T THERAPY
     Route: 065
     Dates: start: 20230612

REACTIONS (2)
  - Hypoxia [Unknown]
  - Hypotension [Unknown]

NARRATIVE: CASE EVENT DATE: 20230601
